FAERS Safety Report 7510179-0 (Version None)
Quarter: 2011Q2

REPORT INFORMATION
  Report Type: 
  Country: None (occurrence: None)
  Receive Date: 20110527
  Receipt Date: 20110523
  Transmission Date: 20111010
  Serious: No
  Sender: FDA-Public Use
  Company Number: US-BAYER-2011-044949

PATIENT
  Age: 44 Year
  Sex: Female

DRUGS (5)
  1. ALBUTEROL SULFATE AUTOHALER [Concomitant]
  2. SINGULAIR [Concomitant]
  3. AVELOX [Suspect]
     Indication: EYE INFECTION
     Dosage: 400 MG, QD
     Route: 048
     Dates: start: 20110514, end: 20110520
  4. PULMICORT [Concomitant]
  5. DEXAMETHASONE [Concomitant]

REACTIONS (2)
  - ARTHRALGIA [None]
  - TOOTH DISCOLOURATION [None]
